FAERS Safety Report 19069540 (Version 1)
Quarter: 2021Q1

REPORT INFORMATION
  Report Type: Report from Study
  Country: IT (occurrence: IT)
  Receive Date: 20210329
  Receipt Date: 20210329
  Transmission Date: 20210420
  Serious: Yes (Hospitalization)
  Sender: FDA-Public Use
  Company Number: IT-PFIZER INC-2021298182

PATIENT
  Age: 60 Year
  Sex: Female
  Weight: 65 kg

DRUGS (11)
  1. ALOXI [Concomitant]
     Active Substance: PALONOSETRON HYDROCHLORIDE
     Dates: start: 20180802, end: 20181105
  2. DESAMETASONE [Concomitant]
     Active Substance: DEXAMETHASONE
     Dates: start: 20180802, end: 20181105
  3. LEVOXACIN [Concomitant]
     Active Substance: LEVOFLOXACIN
     Dates: start: 20181112, end: 20181119
  4. PERTUZUMAB. [Suspect]
     Active Substance: PERTUZUMAB
     Indication: HER2 POSITIVE BREAST CANCER
     Dosage: 420 MG, EVERY 3 WEEKS
     Route: 042
     Dates: start: 20180817, end: 20181019
  5. TRASTUZUMAB. [Suspect]
     Active Substance: TRASTUZUMAB
     Indication: HER2 POSITIVE BREAST CANCER
     Dosage: 500 MG, EVERY 3 WEEKS
     Route: 042
     Dates: start: 20180817, end: 20181019
  6. RANITIDINE. [Concomitant]
     Active Substance: RANITIDINE
     Dates: start: 20180719, end: 20181105
  7. PACLITAXEL. [Suspect]
     Active Substance: PACLITAXEL
     Indication: HER2 POSITIVE BREAST CANCER
     Dosage: 130 MG, WEEKLY
     Route: 042
     Dates: start: 20180726, end: 20181105
  8. BUSCOPAN [Concomitant]
     Active Substance: BUTYLSCOPOLAMINE BROMIDE
     Dates: start: 20180907
  9. CHLORPHENAMINE [Concomitant]
     Active Substance: CHLORPHENIRAMINE MALEATE
     Dates: start: 20180802, end: 20181105
  10. DELTACORTENE [Concomitant]
     Active Substance: PREDNISONE
     Dates: start: 20181105
  11. PIPERACILLIN. [Concomitant]
     Active Substance: PIPERACILLIN SODIUM
     Indication: ACUTE INTERSTITIAL PNEUMONITIS
     Dates: start: 20181115, end: 20181215

REACTIONS (1)
  - Acute interstitial pneumonitis [Recovered/Resolved with Sequelae]

NARRATIVE: CASE EVENT DATE: 20181121
